FAERS Safety Report 8001969-9 (Version None)
Quarter: 2011Q4

REPORT INFORMATION
  Report Type: 
  Country: None (occurrence: None)
  Receive Date: 20111222
  Receipt Date: 20111214
  Transmission Date: 20120403
  Serious: Yes (Hospitalization, Other)
  Sender: FDA-Public Use
  Company Number: US-ROCHE-802959

PATIENT
  Sex: Female

DRUGS (3)
  1. ACCUTANE [Suspect]
     Indication: PRODUCT USED FOR UNKNOWN INDICATION
     Route: 065
  2. ACCUTANE [Suspect]
     Route: 065
  3. ACCUTANE [Suspect]
     Route: 065
     Dates: start: 20000701, end: 20030101

REACTIONS (5)
  - ANAEMIA [None]
  - DEPRESSION [None]
  - SMALL INTESTINAL OBSTRUCTION [None]
  - COLITIS ULCERATIVE [None]
  - OBSESSIVE-COMPULSIVE DISORDER [None]
